FAERS Safety Report 15673287 (Version 10)
Quarter: 2020Q1

REPORT INFORMATION
  Report Type: Spontaneous
  Country: US (occurrence: US)
  Receive Date: 20181129
  Receipt Date: 20200115
  Transmission Date: 20200409
  Serious: No
  Sender: FDA-Public Use
  Company Number: US-PFIZER INC-2018483191

PATIENT
  Age: 28 Year
  Sex: Male
  Weight: 65 kg

DRUGS (2)
  1. XELJANZ [Suspect]
     Active Substance: TOFACITINIB CITRATE
     Indication: ALOPECIA AREATA
     Dosage: 5 MG, 2X/DAY
     Route: 048
     Dates: start: 2018
  2. XELJANZ [Suspect]
     Active Substance: TOFACITINIB CITRATE
     Dosage: 5 MG, 3X/DAY
     Route: 048

REACTIONS (4)
  - Off label use [Unknown]
  - Dyspepsia [Unknown]
  - Drug ineffective for unapproved indication [Unknown]
  - Feeling hot [Unknown]

NARRATIVE: CASE EVENT DATE: 2018
